FAERS Safety Report 11436114 (Version 1)
Quarter: 2015Q3

REPORT INFORMATION
  Report Type: Spontaneous
  Country: US (occurrence: US)
  Receive Date: 20150821
  Receipt Date: 20150821
  Transmission Date: 20151125
  Serious: No
  Sender: FDA-Public Use
  Company Number: US-ELI_LILLY_AND_COMPANY-US201403004134

PATIENT
  Age: 66 Year
  Sex: Male

DRUGS (1)
  1. CIALIS [Suspect]
     Active Substance: TADALAFIL
     Indication: BENIGN PROSTATIC HYPERPLASIA
     Dosage: 5 MG, QD
     Route: 065
     Dates: start: 20140303, end: 20140309

REACTIONS (3)
  - Pain in extremity [Recovering/Resolving]
  - Headache [Unknown]
  - Sleep disorder [Unknown]

NARRATIVE: CASE EVENT DATE: 20140305
